FAERS Safety Report 4897972-8 (Version None)
Quarter: 2006Q1

REPORT INFORMATION
  Report Type: 
  Country: None (occurrence: None)
  Receive Date: 20060130
  Receipt Date: 20060123
  Transmission Date: 20060701
  Serious: Yes (Other)
  Sender: FDA-Public Use
  Company Number: 200610261GDS

PATIENT
  Age: 74 Year
  Sex: Female
  Weight: 68 kg

DRUGS (4)
  1. GLUCOBAY [Suspect]
     Indication: DIABETES MELLITUS
     Dosage: ORAL
     Route: 048
     Dates: start: 20050504, end: 20050620
  2. ALDACTACINE [Concomitant]
  3. OMEPRAZOLE [Concomitant]
  4. LEXATIN [Concomitant]

REACTIONS (6)
  - CALCINOSIS [None]
  - CYTOLYTIC HEPATITIS [None]
  - ECZEMA [None]
  - HEPATITIS CHOLESTATIC [None]
  - LIVER DISORDER [None]
  - SPLEEN DISORDER [None]
